FAERS Safety Report 14186235 (Version 2)
Quarter: 2018Q1

REPORT INFORMATION
  Report Type: Report from Study
  Country: JP (occurrence: JP)
  Receive Date: 20171114
  Receipt Date: 20180108
  Transmission Date: 20180508
  Serious: Yes (Hospitalization)
  Sender: FDA-Public Use
  Company Number: JP-VIFOR (INTERNATIONAL) INC.-VIT-2017-12425

PATIENT
  Age: 45 Year
  Sex: Male
  Weight: 71.9 kg

DRUGS (11)
  1. L-CARTIN FF [Concomitant]
     Active Substance: LEVOCARNITINE
     Indication: MUSCLE SPASMS
  2. NEXIUM [Concomitant]
     Active Substance: ESOMEPRAZOLE MAGNESIUM
     Route: 048
  3. SENNOSIDE A+B CALCIUM [Concomitant]
     Active Substance: SENNOSIDES A AND B
     Route: 048
  4. REGPARA [Concomitant]
     Active Substance: CINACALCET HYDROCHLORIDE
     Route: 048
  5. FOSRENOL [Concomitant]
     Active Substance: LANTHANUM CARBONATE
     Indication: HYPERPHOSPHATAEMIA
     Route: 048
  6. MUCOSTA [Concomitant]
     Active Substance: REBAMIPIDE
     Route: 048
  7. CALTAN-OD [Concomitant]
     Indication: HYPERPHOSPHATAEMIA
     Route: 048
  8. LOTRIGA [Concomitant]
     Active Substance: OMEGA-3-ACID ETHYL ESTERS
     Route: 048
  9. VELPHORO [Suspect]
     Active Substance: FERRIC OXYHYDROXIDE
     Indication: HYPERPHOSPHATAEMIA
     Route: 048
     Dates: start: 20160701
  10. L-CARTIN FF [Concomitant]
     Active Substance: LEVOCARNITINE
     Indication: CARNITINE DEFICIENCY
  11. RENAGEL [Concomitant]
     Active Substance: SEVELAMER HYDROCHLORIDE
     Indication: HYPERPHOSPHATAEMIA
     Route: 048

REACTIONS (6)
  - Nephrogenic anaemia [Recovered/Resolved]
  - Renal cancer [Recovered/Resolved]
  - Hyperparathyroidism secondary [Recovered/Resolved]
  - Hypertension [Not Recovered/Not Resolved]
  - Condition aggravated [Recovered/Resolved]
  - Condition aggravated [Recovered/Resolved]

NARRATIVE: CASE EVENT DATE: 20161108
